FAERS Safety Report 10575564 (Version 1)
Quarter: 2014Q4

REPORT INFORMATION
  Report Type: Spontaneous
  Country: US (occurrence: None)
  Receive Date: 20141110
  Receipt Date: 20141110
  Transmission Date: 20150529
  Serious: Yes (Death, Life-Threatening)
  Sender: FDA-Public Use
  Company Number: None

PATIENT
  Age: 60 Year
  Sex: Female
  Weight: 87 kg

DRUGS (1)
  1. RITUXIMAB [Suspect]
     Active Substance: RITUXIMAB
     Dosage: X1
     Route: 042

REACTIONS (6)
  - Infusion related reaction [None]
  - Chills [None]
  - Acute myocardial infarction [None]
  - Cardio-respiratory arrest [None]
  - Hypotension [None]
  - Pulseless electrical activity [None]

NARRATIVE: CASE EVENT DATE: 20140831
